FAERS Safety Report 4465815-2 (Version None)
Quarter: 2004Q3

REPORT INFORMATION
  Report Type: 
  Country: None (occurrence: None)
  Receive Date: 20040929
  Receipt Date: 20040929
  Transmission Date: 20050211
  Serious: Yes (Other)
  Sender: FDA-Public Use
  Company Number: None

PATIENT
  Age: 16 Year
  Sex: Male

DRUGS (1)
  1. DESMOPRESSIN [Suspect]
     Indication: ANTIDIURETIC HORMONE ABNORMALITY
     Dosage: 10 MCG IV BID
     Route: 042

REACTIONS (5)
  - ANTIDIURETIC HORMONE ABNORMALITY [None]
  - CONDITION AGGRAVATED [None]
  - DISCOMFORT [None]
  - POLYDIPSIA [None]
  - POLYURIA [None]
